FAERS Safety Report 7770887-3 (Version None)
Quarter: 2011Q3

REPORT INFORMATION
  Report Type: 
  Country: None (occurrence: None)
  Receive Date: 20110922
  Receipt Date: 20100809
  Transmission Date: 20111222
  Serious: No
  Sender: FDA-Public Use
  Company Number: US-ASTRAZENECA-2007UW27692

PATIENT
  Age: 50 Year
  Sex: Male
  Weight: 99.8 kg

DRUGS (9)
  1. SEROQUEL [Suspect]
     Indication: DEPRESSION
     Route: 048
     Dates: start: 20011203, end: 20060123
  2. SEROQUEL [Suspect]
     Indication: ANXIETY
     Route: 048
     Dates: start: 20011203, end: 20060123
  3. NAVANE [Concomitant]
     Dates: start: 20040812, end: 20070803
  4. RISPERDAL [Concomitant]
     Indication: SCHIZOPHRENIA
     Dates: start: 20020523, end: 20040812
  5. ZYPREXA [Concomitant]
     Indication: ANXIETY
     Dates: start: 19980801, end: 19981001
  6. ZYPREXA [Concomitant]
     Indication: DEPRESSION
     Dates: start: 19980801, end: 19981001
  7. SEROQUEL [Suspect]
     Indication: SCHIZOPHRENIA
     Route: 048
     Dates: start: 20011203, end: 20060123
  8. RISPERDAL [Concomitant]
     Indication: ANXIETY
     Dates: start: 20020523, end: 20040812
  9. RISPERDAL [Concomitant]
     Indication: DEPRESSION
     Dates: start: 20020523, end: 20040812

REACTIONS (2)
  - TYPE 2 DIABETES MELLITUS [None]
  - DIABETES MELLITUS [None]
